FAERS Safety Report 9024161 (Version 2)
Quarter: 2013Q1

REPORT INFORMATION
  Report Type: Spontaneous
  Country: US (occurrence: US)
  Receive Date: 20130122
  Receipt Date: 20130131
  Transmission Date: 20140127
  Serious: Yes (Hospitalization)
  Sender: FDA-Public Use
  Company Number: US-BIOGENIDEC-2013BI005911

PATIENT
  Age: 49 Year
  Sex: Female

DRUGS (6)
  1. TYSABRI [Suspect]
     Indication: MULTIPLE SCLEROSIS
     Route: 042
     Dates: start: 20050201
  2. TYSABRI [Suspect]
     Indication: MULTIPLE SCLEROSIS
     Route: 042
     Dates: start: 20120517
  3. AVONEX [Concomitant]
     Indication: MULTIPLE SCLEROSIS
     Route: 030
     Dates: start: 19990701
  4. ZANAFLEX [Concomitant]
  5. AMBIEN [Concomitant]
  6. B12 [Concomitant]

REACTIONS (3)
  - Blood pressure increased [Not Recovered/Not Resolved]
  - Poor venous access [Not Recovered/Not Resolved]
  - Multiple sclerosis relapse [Recovered/Resolved]
